FAERS Safety Report 16104012 (Version 2)
Quarter: 2019Q2

REPORT INFORMATION
  Report Type: Spontaneous
  Country: US (occurrence: US)
  Receive Date: 20190322
  Receipt Date: 20190628
  Transmission Date: 20190711
  Serious: No
  Sender: FDA-Public Use
  Company Number: US-GLAXOSMITHKLINE-US2019047906

PATIENT
  Age: 37 Year
  Sex: Male

DRUGS (1)
  1. FLONASE [Suspect]
     Active Substance: FLUTICASONE PROPIONATE
     Indication: HYPERSENSITIVITY
     Dosage: UNK
     Route: 045
     Dates: start: 20190315

REACTIONS (4)
  - Nasal pruritus [Unknown]
  - Nasal discomfort [Unknown]
  - Sinus congestion [Unknown]
  - Product complaint [Unknown]

NARRATIVE: CASE EVENT DATE: 20190315
